FAERS Safety Report 6115521-3 (Version None)
Quarter: 2009Q1

REPORT INFORMATION
  Report Type: 
  Country: None (occurrence: None)
  Receive Date: 20090313
  Receipt Date: 20090306
  Transmission Date: 20090719
  Serious: Yes (Other)
  Sender: FDA-Public Use
  Company Number: IE-ROCHE-619562

PATIENT
  Age: 17 Year
  Sex: Male

DRUGS (1)
  1. ISOTRETINOIN [Suspect]
     Indication: ACNE
     Route: 048
     Dates: start: 20081001, end: 20090212

REACTIONS (3)
  - AFFECTIVE DISORDER [None]
  - SLEEP DISORDER [None]
  - SUICIDAL IDEATION [None]
